FAERS Safety Report 12072805 (Version 6)
Quarter: 2016Q2

REPORT INFORMATION
  Report Type: Spontaneous
  Country: US (occurrence: US)
  Receive Date: 20160212
  Receipt Date: 20160502
  Transmission Date: 20160815
  Serious: Yes (Other)
  Sender: FDA-Public Use
  Company Number: US-PFIZER INC-2016079356

PATIENT
  Age: 60 Year
  Sex: Female
  Weight: 73 kg

DRUGS (6)
  1. ZOLOFT [Concomitant]
     Active Substance: SERTRALINE HYDROCHLORIDE
     Dosage: UNK
  2. SUTENT [Suspect]
     Active Substance: SUNITINIB MALATE
     Dosage: 37.5 MG, CYCLIC (28 DAYS ON/14 DAYS OFF)
     Dates: start: 20160324
  3. NEXIUM [Concomitant]
     Active Substance: ESOMEPRAZOLE MAGNESIUM
     Dosage: UNK
  4. SUTENT [Suspect]
     Active Substance: SUNITINIB MALATE
     Indication: RENAL CELL CARCINOMA STAGE IV
     Dosage: 50 MG, CYCLIC (28 DAYS ON/14 DAYS OFF/ BEDTIME)
     Dates: start: 20160205
  5. SUTENT [Suspect]
     Active Substance: SUNITINIB MALATE
     Dosage: 37.5 MG, DAILY
     Route: 048
  6. XGEVA [Concomitant]
     Active Substance: DENOSUMAB
     Dosage: UNK

REACTIONS (17)
  - Dysgeusia [Recovering/Resolving]
  - Condition aggravated [Not Recovered/Not Resolved]
  - Eating disorder [Unknown]
  - Asthenia [Unknown]
  - Diarrhoea [Unknown]
  - Nightmare [Unknown]
  - Insomnia [Unknown]
  - Feeling abnormal [Unknown]
  - Pallor [Unknown]
  - Yellow skin [Unknown]
  - Liver function test increased [Unknown]
  - Hypertension [Not Recovered/Not Resolved]
  - Fatigue [Unknown]
  - Dry eye [Unknown]
  - Eyelid disorder [Unknown]
  - Blood glucose decreased [Unknown]
  - Weight decreased [Unknown]

NARRATIVE: CASE EVENT DATE: 20160315
